FAERS Safety Report 12366118 (Version 1)
Quarter: 2016Q2

REPORT INFORMATION
  Report Type: Spontaneous
  Country: US (occurrence: US)
  Receive Date: 20160513
  Receipt Date: 20160513
  Transmission Date: 20160815
  Serious: No
  Sender: FDA-Public Use
  Company Number: US-009507513-1604USA014057

PATIENT

DRUGS (1)
  1. NUVARING [Suspect]
     Active Substance: ETHINYL ESTRADIOL\ETONOGESTREL
     Dosage: STRENGTH: 0.12/0.015 MG PER 24 HR (REPORTED AS ^0.12/0.015/24 MG^)
     Route: 067

REACTIONS (1)
  - Adverse event [Unknown]
